FAERS Safety Report 5691454-1 (Version None)
Quarter: 2008Q2

REPORT INFORMATION
  Report Type: 
  Country: None (occurrence: None)
  Receive Date: 20080401
  Receipt Date: 20080401
  Transmission Date: 20081010
  Serious: Yes (Other)
  Sender: FDA-Public Use
  Company Number: None

PATIENT
  Sex: Female
  Weight: 68.9467 kg

DRUGS (2)
  1. SINGULAIR [Suspect]
     Indication: ASTHMA
     Dosage: 1 TABLET DAILY PO
     Route: 048
     Dates: start: 20031001, end: 20080328
  2. SINGULAIR [Suspect]
     Indication: MULTIPLE ALLERGIES
     Dosage: 1 TABLET DAILY PO
     Route: 048
     Dates: start: 20031001, end: 20080328

REACTIONS (7)
  - DEPRESSED MOOD [None]
  - DEPRESSION [None]
  - INCREASED APPETITE [None]
  - INITIAL INSOMNIA [None]
  - INSOMNIA [None]
  - IRRITABILITY [None]
  - WEIGHT INCREASED [None]
